FAERS Safety Report 9650402 (Version 1)
Quarter: 2013Q4

REPORT INFORMATION
  Report Type: Spontaneous
  Country: US (occurrence: US)
  Receive Date: 20131028
  Receipt Date: 20131028
  Transmission Date: 20140711
  Serious: No
  Sender: FDA-Public Use
  Company Number: US-PURDUE-USA-2013-0101057

PATIENT
  Sex: Male

DRUGS (1)
  1. OXYCONTIN (NDA 22-272) [Suspect]
     Indication: PRODUCT USED FOR UNKNOWN INDICATION
     Dosage: 30 MG, Q8H
     Route: 048
     Dates: start: 20130117

REACTIONS (8)
  - Aggression [Unknown]
  - Unevaluable event [Unknown]
  - Agitation [Unknown]
  - Drug effect decreased [Unknown]
  - Dyspnoea [Unknown]
  - Sedation [Unknown]
  - Dizziness [Unknown]
  - Drug ineffective [Unknown]
